FAERS Safety Report 7569979-3 (Version None)
Quarter: 2011Q2

REPORT INFORMATION
  Report Type: 
  Country: None (occurrence: None)
  Receive Date: 20110622
  Receipt Date: 20110622
  Transmission Date: 20111010
  Serious: No
  Sender: FDA-Public Use
  Company Number: None

PATIENT
  Age: 34 Year
  Sex: Female
  Weight: 77.1115 kg

DRUGS (2)
  1. LEVAQUIN [Suspect]
     Indication: SINUSITIS
     Dosage: 1 TABLET DAILY PO
     Route: 048
     Dates: start: 20040507, end: 20040521
  2. LEVAQUIN [Suspect]
     Indication: SINUSITIS
     Dosage: 1 TABLET DAILY PO
     Route: 048
     Dates: start: 20040212, end: 20040222

REACTIONS (15)
  - SKIN WARM [None]
  - PHOTOSENSITIVITY REACTION [None]
  - PAIN IN EXTREMITY [None]
  - ARTHRALGIA [None]
  - CONFUSIONAL STATE [None]
  - MUSCLE TWITCHING [None]
  - MULTIPLE CHEMICAL SENSITIVITY [None]
  - SPEECH DISORDER [None]
  - HYPOAESTHESIA [None]
  - BURNING SENSATION [None]
  - FORMICATION [None]
  - ARTHROPATHY [None]
  - MIGRAINE WITH AURA [None]
  - MEMORY IMPAIRMENT [None]
  - ASTHMA [None]
